FAERS Safety Report 20727875 (Version 1)
Quarter: 2022Q2

REPORT INFORMATION
  Report Type: Spontaneous
  Country: ES (occurrence: ES)
  Receive Date: 20220419
  Receipt Date: 20220419
  Transmission Date: 20220721
  Serious: Yes (Other)
  Sender: FDA-Public Use
  Company Number: ES-STRIDES ARCOLAB LIMITED-2022SP004195

PATIENT
  Age: 5 Year
  Sex: Male

DRUGS (5)
  1. ETHOSUXIMIDE [Suspect]
     Active Substance: ETHOSUXIMIDE
     Indication: Epileptic encephalopathy
     Dosage: UNK
     Route: 065
  2. CLONAZEPAM [Suspect]
     Active Substance: CLONAZEPAM
     Indication: Epileptic encephalopathy
     Dosage: UNK
     Route: 065
  3. VALPROIC ACID [Suspect]
     Active Substance: VALPROIC ACID
     Indication: Epileptic encephalopathy
     Dosage: 70 MILLIGRAM/KILOGRAM, PER DAY
     Route: 065
  4. STIRIPENTOL [Suspect]
     Active Substance: STIRIPENTOL
     Indication: Epileptic encephalopathy
     Dosage: UNK
     Route: 065
  5. CARNITINE [Concomitant]
     Active Substance: CARNITINE
     Indication: Supplementation therapy
     Dosage: UNK
     Route: 065

REACTIONS (2)
  - Fanconi syndrome [Recovered/Resolved]
  - Off label use [Unknown]
